FAERS Safety Report 6264944-0 (Version None)
Quarter: 2009Q3

REPORT INFORMATION
  Report Type: 
  Country: None (occurrence: None)
  Receive Date: 20090709
  Receipt Date: 20090709
  Transmission Date: 20100115
  Serious: No
  Sender: FDA-Public Use
  Company Number: None

PATIENT
  Sex: Female
  Weight: 86.1834 kg

DRUGS (1)
  1. PHENTERMINE 37.5 KVK [Suspect]
     Indication: WEIGHT CONTROL
     Dosage: 37.5 MG 1 A DAY ORAL
     Route: 048
     Dates: start: 20090607, end: 20090618

REACTIONS (3)
  - DRUG INEFFECTIVE [None]
  - HEADACHE [None]
  - PRODUCT SUBSTITUTION ISSUE [None]
